FAERS Safety Report 5763846-3 (Version None)
Quarter: 2008Q2

REPORT INFORMATION
  Report Type: 
  Country: None (occurrence: None)
  Receive Date: 20080602
  Receipt Date: 20080404
  Transmission Date: 20081010
  Serious: Yes (Other)
  Sender: FDA-Public Use
  Company Number: PHEH2008US02136

PATIENT
  Age: 77 Year
  Sex: Female
  Weight: 105 kg

DRUGS (2)
  1. TEKTURNA [Suspect]
     Indication: HYPERTENSION
     Dosage: 300, QD
     Dates: start: 20080211
  2. PROMETHAZINE HCL W/ CODEINE [Suspect]

REACTIONS (3)
  - LIP SWELLING [None]
  - SWOLLEN TONGUE [None]
  - TONGUE DISCOLOURATION [None]
